FAERS Safety Report 8899517 (Version 1)
Quarter: 2012Q4

REPORT INFORMATION
  Report Type: 
  Country: US (occurrence: US)
  Receive Date: 20121108
  Receipt Date: 20121108
  Transmission Date: 20130627
  Serious: No
  Sender: FDA-Public Use
  Company Number: US-AMGEN-USASP2012029868

PATIENT
  Age: 64 Year
  Sex: Female

DRUGS (12)
  1. ENBREL [Suspect]
     Indication: RHEUMATOID ARTHRITIS
     Dosage: 50 mg, qwk
     Route: 058
     Dates: start: 20100924
  2. LEFLUNOMIDE [Concomitant]
     Dosage: 20 mg, qd
  3. MELOXICAM [Concomitant]
     Dosage: 15 mg, qd
  4. COREG CR [Concomitant]
     Dosage: 10 mg, qd
  5. SIMVASTATIN [Concomitant]
     Dosage: 80 mg, qd
  6. ZETIA [Concomitant]
     Dosage: 10 mg, qd
  7. MICARDIS [Concomitant]
     Dosage: 20 mg, qd
  8. SORIATANE [Concomitant]
     Dosage: 1-2qd
  9. CORTISONE [Concomitant]
     Dosage: UNK
  10. TRIAMCINOLONE [Concomitant]
     Dosage: UNK
  11. ASA [Concomitant]
     Dosage: 325 mg, qd
  12. MULTIVITAMIN                       /00097801/ [Concomitant]
     Dosage: UNK UNK, qd

REACTIONS (6)
  - Injection site atrophy [Not Recovered/Not Resolved]
  - Intervertebral disc degeneration [Not Recovered/Not Resolved]
  - Pain in extremity [Not Recovered/Not Resolved]
  - Lipoatrophy [Recovering/Resolving]
  - Osteoarthritis [Unknown]
  - Injection site bruising [Unknown]
